FAERS Safety Report 6316978-5 (Version None)
Quarter: 2009Q3

REPORT INFORMATION
  Report Type: 
  Country: None (occurrence: None)
  Receive Date: 20090820
  Receipt Date: 20090807
  Transmission Date: 20100115
  Serious: Yes (Hospitalization, Disabling)
  Sender: FDA-Public Use
  Company Number: FR-MYLANLABS-2009S1014027

PATIENT
  Age: 46 Year
  Sex: Male

DRUGS (9)
  1. METHOTREXATE MERCK 50 MG/2 ML [Suspect]
     Indication: LEUKAEMIA
     Route: 037
     Dates: start: 20090331, end: 20090331
  2. METHOTREXATE MERCK 50 MG/2 ML [Suspect]
     Dates: start: 20090101
  3. METHOTREXATE MERCK 50 MG/2 ML [Suspect]
     Dates: start: 20090101
  4. METHOTREXATE MERCK 50 MG/2 ML [Suspect]
     Dates: start: 20090101
  5. METHOTREXATE MERCK 50 MG/2 ML [Suspect]
     Dates: start: 20090101
  6. DEPO-MEDROL [Suspect]
     Indication: LEUKAEMIA
     Dates: start: 20090101
  7. DEPO-MEDROL [Suspect]
     Route: 037
     Dates: start: 20090331, end: 20090331
  8. CYTARABINE [Suspect]
     Indication: LEUKAEMIA
     Dates: start: 20090101
  9. CYTARABINE [Suspect]
     Route: 037
     Dates: start: 20090331, end: 20090331

REACTIONS (2)
  - DIPLOPIA [None]
  - PARAPLEGIA [None]
